FAERS Safety Report 17342631 (Version 1)
Quarter: 2020Q1

REPORT INFORMATION
  Report Type: Spontaneous
  Country: US (occurrence: US)
  Receive Date: 20200129
  Receipt Date: 20200129
  Transmission Date: 20200409
  Serious: No
  Sender: FDA-Public Use
  Company Number: US-ALLERGAN-1912348US

PATIENT
  Sex: Female

DRUGS (4)
  1. BOTOX COSMETIC [Suspect]
     Active Substance: ONABOTULINUMTOXINA
     Indication: SKIN WRINKLING
  2. BOTOX COSMETIC [Suspect]
     Active Substance: ONABOTULINUMTOXINA
     Indication: SKIN WRINKLING
  3. BOTOX COSMETIC [Suspect]
     Active Substance: ONABOTULINUMTOXINA
     Indication: SKIN WRINKLING
     Dosage: ACTUAL: 12 UNITS TO FOREHEAD, 16 UNITS TO GLABELLA AND 12 UNITS TO CROWS FEET LINES
     Route: 030
     Dates: start: 20180307, end: 20180307
  4. ANTIDEPRESSANT PILL [Concomitant]
     Indication: DEPRESSION

REACTIONS (1)
  - Therapeutic response decreased [Unknown]
